FAERS Safety Report 8789746 (Version 1)
Quarter: 2012Q4

REPORT INFORMATION
  Report Type: Spontaneous
  Country: NL (occurrence: None)
  Receive Date: 20120906
  Receipt Date: 20120906
  Transmission Date: 20130627
  Serious: Yes (Hospitalization)
  Sender: FDA-Public Use
  Company Number: 2012AP002766

PATIENT
  Age: 4 Year
  Sex: Female

DRUGS (3)
  1. VALPROIC ACID [Suspect]
     Indication: IDIOPATHIC GENERALISED EPILEPSY
  2. VALPROIC ACID [Suspect]
     Indication: IDIOPATHIC GENERALISED EPILEPSY
  3. VALPROIC ACID [Suspect]
     Indication: IDIOPATHIC GENERALISED EPILEPSY

REACTIONS (5)
  - Hallucination, visual [None]
  - Hallucination, auditory [None]
  - Hallucination, tactile [None]
  - Anxiety [None]
  - Withdrawal syndrome [None]
